FAERS Safety Report 25024131 (Version 3)
Quarter: 2025Q2

REPORT INFORMATION
  Report Type: Spontaneous
  Country: US (occurrence: US)
  Receive Date: 20250228
  Receipt Date: 20250403
  Transmission Date: 20250717
  Serious: No
  Sender: PFIZER
  Company Number: US-PFIZER INC-202500043792

PATIENT
  Age: 11 Year
  Sex: Female
  Weight: 44.898 kg

DRUGS (1)
  1. GENOTROPIN [Suspect]
     Active Substance: SOMATROPIN
     Indication: Growth disorder
     Dosage: 0.5 MG, 1X/DAY
     Dates: start: 2020

REACTIONS (4)
  - Device information output issue [Unknown]
  - Device use issue [Unknown]
  - Incorrect dose administered by device [Unknown]
  - Expired device used [Unknown]

NARRATIVE: CASE EVENT DATE: 20250201
